FAERS Safety Report 16416004 (Version 1)
Quarter: 2019Q2

REPORT INFORMATION
  Report Type: Spontaneous
  Country: CL (occurrence: CL)
  Receive Date: 20190611
  Receipt Date: 20190611
  Transmission Date: 20190711
  Serious: Yes (Other)
  Sender: FDA-Public Use
  Company Number: CL-PROVELL PHARMACEUTICALS-2068072

PATIENT
  Sex: Male

DRUGS (1)
  1. EUTHYROX [Suspect]
     Active Substance: LEVOTHYROXINE SODIUM
     Indication: HYPOTHYROIDISM

REACTIONS (8)
  - Alopecia [None]
  - Depression [None]
  - Bone pain [None]
  - Insomnia [None]
  - Fatigue [None]
  - Autoimmune thyroiditis [None]
  - Skin induration [None]
  - Pain [None]
